FAERS Safety Report 7375961-1 (Version None)
Quarter: 2011Q1

REPORT INFORMATION
  Report Type: 
  Country: None (occurrence: None)
  Receive Date: 20110325
  Receipt Date: 20110323
  Transmission Date: 20110831
  Serious: Yes (Hospitalization, Other)
  Sender: FDA-Public Use
  Company Number: US-PFIZER INC-2010004883

PATIENT
  Sex: Female
  Weight: 55.8 kg

DRUGS (6)
  1. NEURONTIN [Suspect]
     Indication: HIP FRACTURE
  2. NEURONTIN [Suspect]
     Indication: INTERVERTEBRAL DISC PROTRUSION
  3. NEURONTIN [Suspect]
     Indication: NEUROPATHY PERIPHERAL
     Dosage: 100 MG, UNK
  4. NEURONTIN [Suspect]
     Indication: SPINAL DISORDER
     Dosage: 300 MG, EVERY 3 HOURS
     Route: 048
     Dates: start: 19960101
  5. NEURONTIN [Suspect]
     Indication: NEURALGIA
  6. GABAPENTIN [Suspect]
     Dosage: UNK

REACTIONS (12)
  - NAUSEA [None]
  - UNEVALUABLE EVENT [None]
  - WITHDRAWAL SYNDROME [None]
  - DEPENDENCE [None]
  - DRUG INEFFECTIVE [None]
  - HIP FRACTURE [None]
  - BLISTER [None]
  - TREMOR [None]
  - HEART RATE INCREASED [None]
  - PAIN [None]
  - ACTIVITIES OF DAILY LIVING IMPAIRED [None]
  - MALAISE [None]
